FAERS Safety Report 13336948 (Version 2)
Quarter: 2017Q1

REPORT INFORMATION
  Report Type: Spontaneous
  Country: US (occurrence: US)
  Receive Date: 20170315
  Receipt Date: 20170330
  Transmission Date: 20170428
  Serious: No
  Sender: FDA-Public Use
  Company Number: US-PFIZER INC-2017104152

PATIENT
  Age: 73 Year
  Sex: Female

DRUGS (2)
  1. EFFEXOR XR [Suspect]
     Active Substance: VENLAFAXINE HYDROCHLORIDE
     Indication: FIBROMYALGIA
     Dosage: 20 MG, 1X/DAY
  2. LYRICA [Concomitant]
     Active Substance: PREGABALIN
     Dosage: 150 MG, 2X/DAY

REACTIONS (1)
  - Malaise [Recovered/Resolved]
